FAERS Safety Report 12835562 (Version 3)
Quarter: 2016Q4

REPORT INFORMATION
  Report Type: Report from Study
  Country: JP (occurrence: JP)
  Receive Date: 20161011
  Receipt Date: 20161102
  Transmission Date: 20170207
  Serious: Yes (Hospitalization)
  Sender: FDA-Public Use
  Company Number: JP-ROCHE-1837627

PATIENT
  Age: 47 Year
  Sex: Female

DRUGS (19)
  1. PREDNISOLONE. [Concomitant]
     Active Substance: PREDNISOLONE
     Route: 048
     Dates: end: 20160830
  2. TOCILIZUMAB [Suspect]
     Active Substance: TOCILIZUMAB
     Indication: SYSTEMIC SCLERODERMA
     Dosage: DATE OF MOST RECENT DOSE OF BLINDED STUDY DRUG PRIOR TO AE ONSET: 28/SEP/2016, KIT IDENTIFICATION OF
     Route: 058
     Dates: start: 20160706
  3. ELDECALCITOL [Concomitant]
     Active Substance: ELDECALCITOL
     Indication: OSTEOPOROSIS PROPHYLAXIS
     Route: 048
     Dates: start: 20140407
  4. KETOPROFEN. [Concomitant]
     Active Substance: KETOPROFEN
     Route: 061
  5. VONOPRAZAN FUMARATE [Concomitant]
     Active Substance: VONOPRAZAN FUMURATE
     Route: 048
     Dates: start: 20161020, end: 20161024
  6. CELECOXIB. [Concomitant]
     Active Substance: CELECOXIB
     Dosage: FREQUENCY PNR AS NEEDED
     Route: 048
     Dates: start: 20161020
  7. MENOAID [Concomitant]
     Indication: MENOPAUSE
     Dosage: DOSE: 1
     Route: 062
     Dates: start: 20160502
  8. LEVOFLOXACIN HEMIHYDRATE [Concomitant]
     Active Substance: LEVOFLOXACIN
     Route: 048
     Dates: start: 20161013
  9. MOSAPRIDE CITRATE [Concomitant]
     Active Substance: MOSAPRIDE CITRATE
     Route: 048
     Dates: start: 20161022
  10. HEPARINOID [Concomitant]
     Active Substance: CHONDROITIN SULFATE (BOVINE)
     Indication: DRY SKIN
     Route: 061
     Dates: start: 20160606
  11. ESTRADIOL. [Concomitant]
     Active Substance: ESTRADIOL
     Indication: MENOPAUSE
     Route: 061
     Dates: start: 20160706
  12. PREDNISOLONE. [Concomitant]
     Active Substance: PREDNISOLONE
     Route: 048
     Dates: start: 20160831
  13. AZATHIOPRINE. [Concomitant]
     Active Substance: AZATHIOPRINE
     Route: 048
     Dates: start: 20161012
  14. DYDROGESTERONE [Concomitant]
     Active Substance: DYDROGESTERONE
     Indication: MENOPAUSE
     Route: 048
     Dates: start: 20160706
  15. RABEPRAZOLE SODIUM. [Concomitant]
     Active Substance: RABEPRAZOLE SODIUM
     Indication: GASTROOESOPHAGEAL REFLUX DISEASE
     Route: 048
     Dates: start: 20141226
  16. CELECOXIB. [Concomitant]
     Active Substance: CELECOXIB
     Route: 048
  17. TOFISOPAM [Concomitant]
     Active Substance: TOFISOPAM
     Indication: MENOPAUSE
     Route: 048
     Dates: start: 20160803
  18. DAIKENCHUTO [Concomitant]
     Active Substance: HERBALS
     Route: 048
     Dates: start: 20161014
  19. HERBAL NOS [Concomitant]
     Active Substance: HERBALS
     Route: 048
     Dates: start: 20161014, end: 20161020

REACTIONS (1)
  - Weight decreased [Not Recovered/Not Resolved]

NARRATIVE: CASE EVENT DATE: 20160927
